FAERS Safety Report 7434316-1 (Version None)
Quarter: 2011Q2

REPORT INFORMATION
  Report Type: 
  Country: None (occurrence: None)
  Receive Date: 20110425
  Receipt Date: 20110421
  Transmission Date: 20111010
  Serious: Yes (Other)
  Sender: FDA-Public Use
  Company Number: US-PFIZER INC-2011087457

PATIENT
  Sex: Female
  Weight: 68.027 kg

DRUGS (3)
  1. ZOLOFT [Concomitant]
     Indication: ANXIETY
     Dosage: UNK
  2. CELEBREX [Suspect]
     Indication: ANKLE FRACTURE
     Dosage: 200 MG, DAILY
     Route: 048
     Dates: start: 20110406, end: 20110421
  3. CELEBREX [Suspect]
     Indication: JOINT SWELLING

REACTIONS (1)
  - RASH GENERALISED [None]
